FAERS Safety Report 7620164-6 (Version None)
Quarter: 2011Q3

REPORT INFORMATION
  Report Type: 
  Country: None (occurrence: None)
  Receive Date: 20110719
  Receipt Date: 20110704
  Transmission Date: 20111222
  Serious: Yes (Death, Hospitalization)
  Sender: FDA-Public Use
  Company Number: PHHY2011DE41106

PATIENT
  Sex: Female

DRUGS (9)
  1. RASILEZ [Suspect]
     Dosage: 1 DF, UNK
     Route: 048
     Dates: start: 20110113
  2. SIMVA [Concomitant]
     Indication: HYPERLIPIDAEMIA
     Dosage: 20 MG, UNK
     Route: 048
  3. ALBUTEROL [Concomitant]
     Dosage: 1 UKN, PRN
  4. RAMIPRIL [Concomitant]
     Indication: HYPERTENSION
     Dosage: 10 MG, UNK
     Route: 048
  5. ASPIRIN [Concomitant]
     Dosage: 100 MG, UNK
     Route: 048
  6. AMLODIPINE [Concomitant]
     Dosage: 10 MG, QD
     Route: 048
  7. RASILEZ [Suspect]
     Indication: HYPERTENSION
     Dosage: UNK UKN, UNK
     Route: 048
     Dates: start: 20100101, end: 20100101
  8. BUDESONIDE [Concomitant]
     Dosage: 1 UKN, PRN
  9. FUROBETA [Concomitant]
     Indication: LYMPHOEDEMA
     Dosage: 1 DF, QD
     Route: 048

REACTIONS (5)
  - MULTI-ORGAN FAILURE [None]
  - BLISTER [None]
  - SKIN REACTION [None]
  - STREPTOCOCCAL SEPSIS [None]
  - ERYTHEMA [None]
